FAERS Safety Report 18936749 (Version 2)
Quarter: 2021Q1

REPORT INFORMATION
  Report Type: Report from Study
  Country: None (occurrence: US)
  Receive Date: 20210225
  Receipt Date: 20210308
  Transmission Date: 20210420
  Serious: Yes (Death)
  Sender: FDA-Public Use
  Company Number: US-ABBVIE-21K-163-3788784-00

PATIENT
  Age: 63 Year
  Sex: Female

DRUGS (2)
  1. MORPHINE SULPHATE [Concomitant]
     Active Substance: MORPHINE SULFATE
     Indication: PRODUCT USED FOR UNKNOWN INDICATION
     Route: 065
  2. HUMIRA [Suspect]
     Active Substance: ADALIMUMAB
     Indication: RHEUMATOID ARTHRITIS
     Dosage: CITRATE FREE
     Route: 058
     Dates: start: 202101, end: 20210203

REACTIONS (9)
  - Choking [Fatal]
  - Asphyxia [Fatal]
  - Cardiac arrest [Fatal]
  - Arthralgia [Fatal]
  - Dyspnoea [Fatal]
  - Agitation [Fatal]
  - Pancreatic carcinoma [Fatal]
  - Infection [Fatal]
  - Bone pain [Fatal]

NARRATIVE: CASE EVENT DATE: 2021
